FAERS Safety Report 25500071 (Version 1)
Quarter: 2025Q2

REPORT INFORMATION
  Report Type: Spontaneous
  Country: GB (occurrence: None)
  Receive Date: 20250628
  Receipt Date: 20250628
  Transmission Date: 20250716
  Serious: Yes (Disabling, Other)
  Sender: FDA-CTU
  Company Number: None

PATIENT
  Age: 43 Year
  Sex: Female

DRUGS (1)
  1. FLUOXETINE [Suspect]
     Active Substance: FLUOXETINE HYDROCHLORIDE
     Indication: Obsessive-compulsive disorder
     Dates: start: 20120619, end: 20230630

REACTIONS (4)
  - Product communication issue [None]
  - Cerebral disorder [None]
  - Withdrawal syndrome [None]
  - Emotional disorder [None]

NARRATIVE: CASE EVENT DATE: 20240331
